FAERS Safety Report 14497257 (Version 1)
Quarter: 2018Q1

REPORT INFORMATION
  Report Type: Spontaneous
  Country: US (occurrence: US)
  Receive Date: 20180206
  Receipt Date: 20180206
  Transmission Date: 20180509
  Serious: No
  Sender: FDA-Public Use
  Company Number: None

PATIENT
  Age: 46 Year
  Sex: Female

DRUGS (1)
  1. TEMOZOLOMIDE 250MG CAP TEVA [Suspect]
     Active Substance: TEMOZOLOMIDE
     Indication: BRAIN NEOPLASM MALIGNANT
     Dosage: QG X 5 DAYS, E
     Route: 048
     Dates: start: 20170613

REACTIONS (3)
  - Urticaria [None]
  - Product quality issue [None]
  - Rash pruritic [None]

NARRATIVE: CASE EVENT DATE: 20180205
